FAERS Safety Report 13777751 (Version 1)
Quarter: 2017Q3

REPORT INFORMATION
  Report Type: Spontaneous
  Country: KR (occurrence: KR)
  Receive Date: 20170721
  Receipt Date: 20170721
  Transmission Date: 20171127
  Serious: Yes (Other)
  Sender: FDA-Public Use
  Company Number: KR-FRESENIUS KABI-FK201706233

PATIENT
  Age: 69 Year
  Sex: Male

DRUGS (6)
  1. FLUOROURACIL (MANUFACTURER UNKNOWN) [Suspect]
     Active Substance: FLUOROURACIL
     Indication: METASTASES TO BONE
  2. OXALIPLATIN (MANUFACTURER UNKNOWN) [Suspect]
     Active Substance: OXALIPLATIN
     Indication: RECTAL CANCER
     Route: 065
  3. CAPECITABINE (MANUFACTURER UNKNOWN) [Suspect]
     Active Substance: CAPECITABINE
     Indication: METASTASES TO BONE
  4. FLUOROURACIL (MANUFACTURER UNKNOWN) [Suspect]
     Active Substance: FLUOROURACIL
     Indication: RECTAL CANCER
     Route: 065
  5. CAPECITABINE (MANUFACTURER UNKNOWN) [Suspect]
     Active Substance: CAPECITABINE
     Indication: RECTAL CANCER
     Route: 065
  6. OXALIPLATIN (MANUFACTURER UNKNOWN) [Suspect]
     Active Substance: OXALIPLATIN
     Indication: METASTASES TO BONE

REACTIONS (4)
  - Pancytopenia [Unknown]
  - Nausea [Unknown]
  - Hypophagia [Unknown]
  - Blood creatinine increased [Unknown]
